FAERS Safety Report 18754023 (Version 2)
Quarter: 2021Q1

REPORT INFORMATION
  Report Type: Report from Study
  Country: US (occurrence: US)
  Receive Date: 20210119
  Receipt Date: 20210201
  Transmission Date: 20210419
  Serious: Yes (Other)
  Sender: FDA-Public Use
  Company Number: US-EMD SERONO-9212540

PATIENT
  Sex: Male

DRUGS (2)
  1. RISPERIDONE. [Suspect]
     Active Substance: RISPERIDONE
     Indication: DEPRESSION
     Dosage: START DATE: SINCE MORE THAN 8 YEARS (AS OF 09 JAN 2021)
  2. REBIF [Suspect]
     Active Substance: INTERFERON BETA-1A
     Indication: PRODUCT USED FOR UNKNOWN INDICATION
     Route: 058
     Dates: start: 20170320

REACTIONS (9)
  - Diabetes mellitus [Unknown]
  - Depression [Unknown]
  - Neuropathy peripheral [Unknown]
  - Cataract [Unknown]
  - Arthralgia [Unknown]
  - Pruritus [Unknown]
  - Cardiac disorder [Unknown]
  - Benign prostatic hyperplasia [Unknown]
  - Neuralgia [Unknown]
